FAERS Safety Report 6791213-2 (Version None)
Quarter: 2010Q2

REPORT INFORMATION
  Report Type: 
  Country: None (occurrence: None)
  Receive Date: 20100623
  Receipt Date: 20100623
  Transmission Date: 20101027
  Serious: No
  Sender: FDA-Public Use
  Company Number: None

PATIENT
  Age: 49 Year
  Sex: Female
  Weight: 68.4932 kg

DRUGS (2)
  1. DEXILANT [Suspect]
     Indication: GASTRITIS
     Dosage: 60 MG 1 PER DAY PO
     Route: 048
     Dates: start: 20100521, end: 20100622
  2. DEXILANT [Suspect]
     Indication: GASTROOESOPHAGEAL REFLUX DISEASE
     Dosage: 60 MG 1 PER DAY PO
     Route: 048
     Dates: start: 20100521, end: 20100622

REACTIONS (6)
  - CONFUSIONAL STATE [None]
  - DIZZINESS [None]
  - FATIGUE [None]
  - HEADACHE [None]
  - NAUSEA [None]
  - NIGHTMARE [None]
